FAERS Safety Report 5460448-3 (Version None)
Quarter: 2007Q3

REPORT INFORMATION
  Report Type: 
  Country: None (occurrence: None)
  Receive Date: 20070919
  Receipt Date: 20070910
  Transmission Date: 20080115
  Serious: Yes (Hospitalization)
  Sender: FDA-Public Use
  Company Number: IT-PFIZER INC-2007058655

PATIENT
  Sex: Male
  Weight: 68 kg

DRUGS (1)
  1. SU-011,248 [Suspect]
     Indication: RENAL CANCER METASTATIC
     Route: 048

REACTIONS (2)
  - RENAL FAILURE [None]
  - RESPIRATORY FAILURE [None]
